FAERS Safety Report 5727916-8 (Version None)
Quarter: 2008Q2

REPORT INFORMATION
  Report Type: 
  Country: None (occurrence: None)
  Receive Date: 20080505
  Receipt Date: 20080423
  Transmission Date: 20081010
  Serious: Yes (Other)
  Sender: FDA-Public Use
  Company Number: US-PFIZER INC-2007044730

PATIENT
  Sex: Male
  Weight: 72.727 kg

DRUGS (5)
  1. LYRICA [Suspect]
     Indication: POST HERPETIC NEURALGIA
  2. CELEBREX [Concomitant]
  3. NORVASC [Concomitant]
  4. ATENOLOL [Concomitant]
  5. OPHTHALMOLOGICALS [Concomitant]

REACTIONS (8)
  - DIZZINESS [None]
  - DRUG INEFFECTIVE [None]
  - DRY MOUTH [None]
  - FEELING JITTERY [None]
  - NERVOUSNESS [None]
  - OEDEMA MOUTH [None]
  - PAIN [None]
  - PHARYNGOLARYNGEAL PAIN [None]
